FAERS Safety Report 24268743 (Version 3)
Quarter: 2024Q3

REPORT INFORMATION
  Report Type: Spontaneous
  Country: BR (occurrence: BR)
  Receive Date: 20240830
  Receipt Date: 20240916
  Transmission Date: 20241016
  Serious: Yes (Other)
  Sender: PFIZER
  Company Number: BR-PFIZER INC-202400245016

PATIENT
  Age: 63 Year
  Sex: Female
  Weight: 59.8 kg

DRUGS (22)
  1. RUXIENCE [Suspect]
     Active Substance: RITUXIMAB-PVVR
     Indication: Follicular lymphoma
     Dosage: 600 MG, CYCLIC
     Route: 042
     Dates: start: 20240819, end: 20240819
  2. RUXIENCE [Suspect]
     Active Substance: RITUXIMAB-PVVR
     Dosage: 600 MG, CYCLIC
     Route: 042
     Dates: start: 20240819, end: 20240819
  3. RUXIENCE [Suspect]
     Active Substance: RITUXIMAB-PVVR
     Dosage: 600 MG, CYCLIC
     Route: 042
     Dates: start: 20240909, end: 20240909
  4. RUXIENCE [Suspect]
     Active Substance: RITUXIMAB-PVVR
     Dosage: 600 MG, CYCLIC
     Route: 042
     Dates: start: 20240909, end: 20240909
  5. ACETAMINOPHEN [Concomitant]
     Active Substance: ACETAMINOPHEN
     Indication: Premedication
     Dosage: 750 MG, CYCLIC
     Route: 048
     Dates: start: 20240819, end: 20240819
  6. ACETAMINOPHEN [Concomitant]
     Active Substance: ACETAMINOPHEN
     Dosage: 750 MG
     Route: 048
     Dates: start: 20240909, end: 20240909
  7. DIPHENHYDRAMINE [Concomitant]
     Active Substance: DIPHENHYDRAMINE
     Indication: Premedication
     Dosage: 50 MG, CYCLIC
     Route: 042
     Dates: start: 20240819, end: 20240819
  8. DIPHENHYDRAMINE [Concomitant]
     Active Substance: DIPHENHYDRAMINE
     Dosage: 50 MG, CYCLIC 20 MINUTES
     Route: 042
     Dates: start: 20240909, end: 20240909
  9. DEXAMETHASONE [Concomitant]
     Active Substance: DEXAMETHASONE
     Indication: Premedication
     Dosage: 20 MG, CYCLIC
     Route: 042
     Dates: start: 20240819, end: 20240819
  10. DEXAMETHASONE [Concomitant]
     Active Substance: DEXAMETHASONE
     Dosage: 20 MG,CYCLIC , 10 MINUTES
     Route: 042
     Dates: start: 20240909, end: 20240909
  11. ONDANSETRON [Concomitant]
     Active Substance: ONDANSETRON
     Indication: Premedication
     Dosage: 8 MG, CYCLIC
     Route: 042
     Dates: start: 20240819, end: 20240819
  12. ONDANSETRON [Concomitant]
     Active Substance: ONDANSETRON
     Dosage: 8 MG, CYCLIC, 10 MINUTES
     Route: 042
     Dates: start: 20240909, end: 20240909
  13. VINCRISTINE [Concomitant]
     Active Substance: VINCRISTINE
     Indication: Non-Hodgkin^s lymphoma
     Dosage: 2 MG, CYCLIC
     Route: 042
     Dates: start: 20240819, end: 20240819
  14. VINCRISTINE [Concomitant]
     Active Substance: VINCRISTINE
     Dosage: 2 MG CYCLIC
     Dates: start: 20240909, end: 20240909
  15. DOXORUBICIN [Concomitant]
     Active Substance: DOXORUBICIN
     Indication: Non-Hodgkin^s lymphoma
     Dosage: 80.5 MG, CYCLIC
     Route: 042
     Dates: start: 20240819, end: 20240819
  16. DOXORUBICIN [Concomitant]
     Active Substance: DOXORUBICIN
     Dosage: 79 MG
     Route: 042
     Dates: start: 20240909, end: 20240909
  17. CYCLOPHOSPHAMIDE [Concomitant]
     Active Substance: CYCLOPHOSPHAMIDE
     Indication: Non-Hodgkin^s lymphoma
     Dosage: 1207.5 MG, CYCLIC
     Route: 042
     Dates: start: 20240819, end: 20240819
  18. CYCLOPHOSPHAMIDE [Concomitant]
     Active Substance: CYCLOPHOSPHAMIDE
     Dosage: 1185 MG, CYCLIC, 15 MINUTES
     Route: 042
     Dates: start: 20240909, end: 20240909
  19. SIMVASTATIN [Concomitant]
     Active Substance: SIMVASTATIN
     Indication: Dyslipidaemia
     Dosage: 20 MG, 1X/DAY
     Route: 048
  20. ALLOPURINOL [Concomitant]
     Active Substance: ALLOPURINOL
     Dosage: 100 MG, 1X/DAY
     Route: 048
  21. OMEPRAZOLE [Concomitant]
     Active Substance: OMEPRAZOLE
     Dosage: 20 MG, 1X/DAY
     Route: 048
  22. ACYCLOVIR [Concomitant]
     Active Substance: ACYCLOVIR
     Dosage: 400 MG, 2X/DAY, 12/12H
     Route: 048

REACTIONS (6)
  - Pruritus [Recovered/Resolved]
  - Oedema [Recovered/Resolved]
  - Throat irritation [Recovered/Resolved]
  - Back pain [Recovered/Resolved]
  - Ocular hyperaemia [Recovered/Resolved]
  - Blood pressure systolic increased [Recovered/Resolved]

NARRATIVE: CASE EVENT DATE: 20240819
